FAERS Safety Report 25046985 (Version 1)
Quarter: 2025Q1

REPORT INFORMATION
  Report Type: Spontaneous
  Country: FR (occurrence: FR)
  Receive Date: 20250306
  Receipt Date: 20250306
  Transmission Date: 20250409
  Serious: Yes (Other)
  Sender: PFIZER
  Company Number: FR-JNJFOC-20250245934

PATIENT
  Age: 72 Year
  Sex: Female

DRUGS (2)
  1. CARBOPLATIN [Suspect]
     Active Substance: CARBOPLATIN
  2. AMIVANTAMAB [Suspect]
     Active Substance: AMIVANTAMAB

REACTIONS (1)
  - Renal failure [Unknown]
